FAERS Safety Report 5566945-4 (Version None)
Quarter: 2007Q4

REPORT INFORMATION
  Report Type: 
  Country: None (occurrence: None)
  Receive Date: 20071219
  Receipt Date: 20070509
  Transmission Date: 20080405
  Serious: No
  Sender: FDA-Public Use
  Company Number: US-BRISTOL-MYERS SQUIBB COMPANY-13774070

PATIENT
  Sex: Female
  Weight: 58 kg

DRUGS (6)
  1. PRAVACHOL [Suspect]
     Route: 048
  2. ATENOLOL [Suspect]
     Route: 048
     Dates: start: 20060101
  3. CATAPRES [Concomitant]
  4. NIFEDIPINE [Concomitant]
  5. NEXIUM [Concomitant]
  6. ZETIA [Concomitant]

REACTIONS (1)
  - ALOPECIA [None]
